FAERS Safety Report 8694127 (Version 3)
Quarter: 2012Q4

REPORT INFORMATION
  Report Type: 
  Country: JP (occurrence: JP)
  Receive Date: 20120731
  Receipt Date: 20120910
  Transmission Date: 20130627
  Serious: Yes (Hospitalization)
  Sender: FDA-Public Use
  Company Number: PHHY2012JP062288

PATIENT
  Age: 79 Year
  Sex: Female

DRUGS (1)
  1. ZOMETA [Suspect]
     Indication: METASTASES TO BONE
     Dosage: 4 mg, per administration
     Route: 041

REACTIONS (3)
  - Respiratory paralysis [Unknown]
  - Hypokalaemia [Recovered/Resolved]
  - Muscular weakness [Unknown]
